FAERS Safety Report 8319912-1 (Version None)
Quarter: 2012Q2

REPORT INFORMATION
  Report Type: 
  Country: None (occurrence: None)
  Receive Date: 20120427
  Receipt Date: 20120423
  Transmission Date: 20120825
  Serious: Yes (Hospitalization, Other)
  Sender: FDA-Public Use
  Company Number: US-PFIZER INC-2012058321

PATIENT
  Sex: Female
  Weight: 85.714 kg

DRUGS (7)
  1. SYNTHROID [Concomitant]
     Indication: THYROIDECTOMY
     Dosage: 200 MCG DAILY MON-SAT, 300 MCG ON SUNDAY
  2. CYMBALTA [Suspect]
     Indication: ANXIETY
  3. LYRICA [Suspect]
     Indication: FIBROMYALGIA
     Dosage: 150 MG, 2X/DAY
     Dates: start: 20080101
  4. CYMBALTA [Suspect]
     Indication: DEPRESSION
     Dosage: 120 MG, DAILY
  5. VERAPAMIL HCL [Suspect]
     Indication: MIGRAINE
     Dosage: UNK
     Dates: end: 20110801
  6. LYRICA [Suspect]
     Dosage: 75 MG, DAILY
  7. VERAPAMIL HCL [Suspect]
     Indication: MUSCLE SPASMS

REACTIONS (24)
  - OEDEMA [None]
  - CLAUSTROPHOBIA [None]
  - MEAN CELL VOLUME DECREASED [None]
  - LYMPHOCYTE COUNT INCREASED [None]
  - HYPERHIDROSIS [None]
  - CONVERSION DISORDER [None]
  - FEELING ABNORMAL [None]
  - NIGHTMARE [None]
  - NAUSEA [None]
  - FORMICATION [None]
  - BRADYPHRENIA [None]
  - DEPRESSION [None]
  - PANIC ATTACK [None]
  - WITHDRAWAL SYNDROME [None]
  - PLATELET COUNT INCREASED [None]
  - ABNORMAL BEHAVIOUR [None]
  - SUICIDAL IDEATION [None]
  - PSYCHOTIC DISORDER [None]
  - COLD SWEAT [None]
  - FEAR [None]
  - THINKING ABNORMAL [None]
  - URINARY INCONTINENCE [None]
  - ANXIETY [None]
  - MUSCLE SPASMS [None]
